FAERS Safety Report 9310306 (Version 3)
Quarter: 2014Q1

REPORT INFORMATION
  Report Type: Spontaneous
  Country: US (occurrence: US)
  Receive Date: 20130527
  Receipt Date: 20140209
  Transmission Date: 20141002
  Serious: Yes (Other)
  Sender: FDA-Public Use
  Company Number: US-PFIZER INC-2013160147

PATIENT
  Age: 44 Year
  Sex: Female

DRUGS (5)
  1. GEODON [Suspect]
     Dosage: 80 MG, AT BEDTIME
     Route: 048
  2. GEODON [Suspect]
     Dosage: 40 MG, 1X/DAY
  3. CELEXA [Concomitant]
     Dosage: UNK
  4. TEGRETOL [Concomitant]
     Dosage: UNK
  5. SYNTHROID [Concomitant]
     Dosage: UNK

REACTIONS (3)
  - Fall [Unknown]
  - Brain injury [Unknown]
  - Mental impairment [Unknown]
